FAERS Safety Report 8064685-3 (Version None)
Quarter: 2012Q1

REPORT INFORMATION
  Report Type: 
  Country: None (occurrence: None)
  Receive Date: 20120123
  Receipt Date: 20120112
  Transmission Date: 20120608
  Serious: Yes (Other)
  Sender: FDA-Public Use
  Company Number: US-ASTRAZENECA-2012SE02720

PATIENT
  Age: 53 Year
  Sex: Female

DRUGS (2)
  1. SEROQUEL [Suspect]
     Indication: DEPRESSION
     Route: 048
  2. NEXIUM [Suspect]
     Route: 048

REACTIONS (2)
  - RIB FRACTURE [None]
  - ROTATOR CUFF SYNDROME [None]
